FAERS Safety Report 10927768 (Version 1)
Quarter: 2015Q1

REPORT INFORMATION
  Report Type: Spontaneous
  Country: US (occurrence: US)
  Receive Date: 20150319
  Receipt Date: 20150319
  Transmission Date: 20150721
  Serious: No
  Sender: FDA-Public Use
  Company Number: US-009507513-1503USA005734

PATIENT
  Sex: Male

DRUGS (5)
  1. COZAAR [Suspect]
     Active Substance: LOSARTAN POTASSIUM
     Route: 048
  2. PRINIVIL [Suspect]
     Active Substance: LISINOPRIL
     Indication: CARDIAC DISORDER
     Dosage: DOSE: 20 (UNIT UNKNOWN)
     Route: 048
     Dates: start: 2013, end: 2013
  3. METOPROLOL [Suspect]
     Active Substance: METOPROLOL
     Route: 048
  4. PREDNISONE. [Suspect]
     Active Substance: PREDNISONE
     Route: 048
  5. FLAGYL [Suspect]
     Active Substance: METRONIDAZOLE\METRONIDAZOLE HYDROCHLORIDE

REACTIONS (4)
  - Drug hypersensitivity [Recovered/Resolved]
  - Fatigue [Recovered/Resolved]
  - Hypotension [Recovered/Resolved]
  - Insomnia [Recovered/Resolved]

NARRATIVE: CASE EVENT DATE: 2013
